FAERS Safety Report 7683231 (Version 6)
Quarter: 2013Q3

REPORT INFORMATION
  Report Type: Spontaneous
  Country: US (occurrence: US)
  Receive Date: 20101125
  Receipt Date: 20130830
  Transmission Date: 20140515
  Serious: No
  Sender: FDA-Public Use
  Company Number: US-BIOGENIDEC-2010BI040898

PATIENT
  Age: 38 Year
  Sex: Female

DRUGS (12)
  1. TYSABRI [Suspect]
     Indication: MULTIPLE SCLEROSIS
     Route: 042
     Dates: start: 20100804, end: 20110518
  2. AMPYRA [Concomitant]
  3. BACLOFEN [Concomitant]
  4. VITAMIN D [Concomitant]
  5. VITAMIN D [Concomitant]
  6. LORAZEPAM [Concomitant]
  7. VITAMIN B COMPLEX [Concomitant]
  8. ALEVE [Concomitant]
  9. NITROFURAN [Concomitant]
     Indication: CYSTITIS
  10. METHYLCELLULOSE [Concomitant]
  11. PREDNISONE [Concomitant]
     Route: 048
  12. IMITREX [Concomitant]
     Indication: MIGRAINE
     Route: 048

REACTIONS (10)
  - Balance disorder [Not Recovered/Not Resolved]
  - Euphoric mood [Unknown]
  - Gait disturbance [Not Recovered/Not Resolved]
  - Migraine [Recovered/Resolved]
  - Insomnia [Unknown]
  - Muscle tightness [Not Recovered/Not Resolved]
  - Drug ineffective [Not Recovered/Not Resolved]
  - Viral infection [Recovered/Resolved]
  - Dizziness [Recovered/Resolved]
  - Multiple sclerosis [Not Recovered/Not Resolved]
